FAERS Safety Report 9451564 (Version 1)
Quarter: 2013Q3

REPORT INFORMATION
  Report Type: Spontaneous
  Country: US (occurrence: US)
  Receive Date: 20130811
  Receipt Date: 20130811
  Transmission Date: 20140515
  Serious: No
  Sender: FDA-Public Use
  Company Number: US-009507513-1308USA003053

PATIENT
  Sex: Male

DRUGS (2)
  1. SAPHRIS [Suspect]
     Indication: SCHIZOPHRENIA
     Dosage: 5 MG IN THE MORNING, 10 MG AT NIGHT, 15MG DAILY
     Route: 060
  2. HALDOL [Concomitant]

REACTIONS (1)
  - Galactorrhoea [Recovered/Resolved]
